FAERS Safety Report 5135015-1 (Version None)
Quarter: 2006Q4

REPORT INFORMATION
  Report Type: 
  Country: None (occurrence: None)
  Receive Date: 20061025
  Receipt Date: 20061018
  Transmission Date: 20070319
  Serious: Yes (Hospitalization)
  Sender: FDA-Public Use
  Company Number: AU-GILEAD-2006-0010498

PATIENT
  Sex: Male

DRUGS (6)
  1. TRUVADA [Suspect]
     Indication: HIV INFECTION
     Route: 048
     Dates: start: 20061017, end: 20061017
  2. TRUVADA [Suspect]
     Dates: start: 20061005, end: 20061005
  3. TRUVADA [Suspect]
  4. ATAZANAVIR [Suspect]
     Indication: HIV INFECTION
     Route: 048
     Dates: start: 20061005, end: 20061005
  5. ATAZANAVIR [Suspect]
     Route: 048
  6. VALTREX [Concomitant]
     Indication: HERPES SIMPLEX

REACTIONS (4)
  - GROIN PAIN [None]
  - HERPES SIMPLEX [None]
  - PAIN [None]
  - PAIN IN EXTREMITY [None]
